FAERS Safety Report 5191175-8 (Version None)
Quarter: 2006Q4

REPORT INFORMATION
  Report Type: 
  Country: None (occurrence: None)
  Receive Date: 20061220
  Receipt Date: 20061220
  Transmission Date: 20070319
  Serious: Yes (Hospitalization)
  Sender: FDA-Public Use
  Company Number: None

PATIENT
  Age: 23 Year
  Sex: Female
  Weight: 60.782 kg

DRUGS (2)
  1. SUCCINYLCHOLINE CHLORIDE [Suspect]
     Indication: GENERAL ANAESTHESIA
     Dosage: 120 MG IV
     Route: 042
     Dates: start: 20060720
  2. ORAL CONTRACEPTIVE [Concomitant]

REACTIONS (3)
  - ANAESTHETIC COMPLICATION [None]
  - MUSCULAR WEAKNESS [None]
  - PSEUDOCHOLINESTERASE DEFICIENCY [None]
